FAERS Safety Report 7196839-2 (Version None)
Quarter: 2010Q4

REPORT INFORMATION
  Report Type: 
  Country: None (occurrence: None)
  Receive Date: 20101223
  Receipt Date: 20101115
  Transmission Date: 20110411
  Serious: No
  Sender: FDA-Public Use
  Company Number: US-AMGEN-TCS440052

PATIENT

DRUGS (18)
  1. ENBREL [Suspect]
     Indication: RHEUMATOID ARTHRITIS
     Dosage: 50 MG, QWK
     Route: 058
     Dates: start: 20100830
  2. PLAQUENIL [Concomitant]
     Dosage: 200 MG, BID
     Route: 048
  3. FOLIC ACID [Concomitant]
     Dosage: 1 MG, QD
     Route: 048
  4. VENLAFAXINE [Concomitant]
     Dosage: 150 MG, QD
     Route: 048
  5. FENTANYL [Concomitant]
     Dosage: 75 MCG 1 PATCH EVERY THREE DAYS
  6. ADVAIR [Concomitant]
     Dosage: 250/50
  7. TRAMADOL HCL [Concomitant]
     Dosage: 50 MG, Q2H
     Route: 048
  8. ALBUTEROL [Concomitant]
     Dosage: TWO PUFFS, BID
  9. SYNTHROID [Concomitant]
     Dosage: 75 MG, QD
     Route: 048
  10. METOCLOPRAMIDE [Concomitant]
     Dosage: 10 MG, TID
     Route: 048
  11. TOPAMAX [Concomitant]
     Dosage: 200 MG, QD
     Route: 048
  12. ATENOLOL [Concomitant]
     Dosage: 25 MG, BID
     Route: 048
  13. IMITREX [Concomitant]
     Indication: MIGRAINE
     Dosage: 100 MG, PRN
  14. EPIPEN                             /00003901/ [Concomitant]
     Dosage: UNK UNK, PRN
     Route: 058
  15. GABAPENTIN [Concomitant]
     Dosage: 300 MG, TID
     Route: 048
  16. OMEPRAZOLE [Concomitant]
     Dosage: 20 MG, QD
     Route: 048
  17. ARAVA [Concomitant]
     Dosage: 20 MG, QD
     Route: 048
  18. VIT D [Concomitant]
     Dosage: 5000 UNIT, QWK
     Route: 048

REACTIONS (7)
  - DIARRHOEA [None]
  - ERYTHEMA [None]
  - INJECTION SITE ERYTHEMA [None]
  - INJECTION SITE PRURITUS [None]
  - INJECTION SITE URTICARIA [None]
  - INJECTION SITE WARMTH [None]
  - SKIN EXFOLIATION [None]
